FAERS Safety Report 5858989-X (Version None)
Quarter: 2008Q3

REPORT INFORMATION
  Report Type: 
  Country: None (occurrence: None)
  Receive Date: 20080825
  Receipt Date: 20080812
  Transmission Date: 20090109
  Serious: Yes (Other)
  Sender: FDA-Public Use
  Company Number: US-1166978

PATIENT
  Age: 74 Year
  Sex: Female

DRUGS (1)
  1. SYSTANE EYE DROPS [Suspect]
     Indication: DRY EYE
     Dosage: OPHTHALMIC
     Route: 047
     Dates: start: 20080101, end: 20080701

REACTIONS (8)
  - DRUG HYPERSENSITIVITY [None]
  - EAR PAIN [None]
  - EYE INFECTION FUNGAL [None]
  - GINGIVAL PAIN [None]
  - HERPES OPHTHALMIC [None]
  - OROPHARYNGEAL PAIN [None]
  - PAIN [None]
  - VISION BLURRED [None]
